FAERS Safety Report 25106940 (Version 2)
Quarter: 2025Q2

REPORT INFORMATION
  Report Type: Spontaneous
  Country: FR (occurrence: FR)
  Receive Date: 20250321
  Receipt Date: 20250408
  Transmission Date: 20250716
  Serious: Yes (Other)
  Sender: pharmaAND
  Company Number: FR-Pharmaand-2024000159

PATIENT
  Age: 78 Year
  Sex: Male

DRUGS (1)
  1. PEGASYS [Suspect]
     Active Substance: PEGINTERFERON ALFA-2A
     Dosage: EVERY WEDNESDAY
     Dates: start: 20220901, end: 202411

REACTIONS (6)
  - Cardiac disorder [Unknown]
  - Ejection fraction decreased [Recovered/Resolved]
  - Cardiac operation [Unknown]
  - Drug effective for unapproved indication [Recovered/Resolved]
  - Off label use [Recovered/Resolved]
  - Cutaneous T-cell lymphoma [Recovered/Resolved]

NARRATIVE: CASE EVENT DATE: 20220901
